FAERS Safety Report 10681997 (Version 1)
Quarter: 2014Q4

REPORT INFORMATION
  Report Type: Spontaneous
  Country: US (occurrence: None)
  Receive Date: 20141229
  Receipt Date: 20141229
  Transmission Date: 20150529
  Serious: No
  Sender: FDA-Public Use
  Company Number: None

PATIENT
  Age: 59 Year
  Sex: Female
  Weight: 105.9 kg

DRUGS (1)
  1. HUMIRA [Suspect]
     Active Substance: ADALIMUMAB
     Indication: ARTHRITIS

REACTIONS (16)
  - Diarrhoea [None]
  - Dry throat [None]
  - Nasopharyngitis [None]
  - Ear disorder [None]
  - Throat irritation [None]
  - Cough [None]
  - Abdominal pain upper [None]
  - Vomiting [None]
  - Nervousness [None]
  - Impaired work ability [None]
  - Arthralgia [None]
  - Dyspnoea exertional [None]
  - Headache [None]
  - Asthenia [None]
  - Pruritus [None]
  - Pain in extremity [None]

NARRATIVE: CASE EVENT DATE: 20141017
